FAERS Safety Report 6960492-0 (Version None)
Quarter: 2010Q3

REPORT INFORMATION
  Report Type: 
  Country: None (occurrence: None)
  Receive Date: 20100818
  Receipt Date: 20100412
  Transmission Date: 20110219
  Serious: Yes (Other)
  Sender: FDA-Public Use
  Company Number: 2010046438

PATIENT

DRUGS (1)
  1. AZULFIDINE [Suspect]

REACTIONS (1)
  - METHAEMOGLOBINAEMIA [None]
